FAERS Safety Report 4569309-5 (Version None)
Quarter: 2005Q1

REPORT INFORMATION
  Report Type: 
  Country: None (occurrence: None)
  Receive Date: 20050201
  Receipt Date: 20050117
  Transmission Date: 20050727
  Serious: No
  Sender: FDA-Public Use
  Company Number: 2004-BP-09992BP

PATIENT
  Sex: Male

DRUGS (6)
  1. FLOMAX [Suspect]
     Indication: BENIGN PROSTATIC HYPERPLASIA
     Dosage: SEE IMAGE
     Route: 048
  2. FLOMAX [Suspect]
     Indication: BENIGN PROSTATIC HYPERPLASIA
     Dosage: SEE IMAGE
     Route: 048
     Dates: start: 20030101
  3. PROSCAR [Concomitant]
  4. ENTEX (PSE (RESPAIRE-SR-1-20) [Concomitant]
  5. RHINOCORT AQUA (BUDESONIDE) [Concomitant]
  6. NIFEDIPINE [Concomitant]

REACTIONS (3)
  - COLON CANCER [None]
  - NOCTURIA [None]
  - OEDEMA PERIPHERAL [None]
